FAERS Safety Report 9001243 (Version 1)
Quarter: 2013Q1

REPORT INFORMATION
  Report Type: Report from Study
  Country: FI (occurrence: FI)
  Receive Date: 20130107
  Receipt Date: 20130107
  Transmission Date: 20140127
  Serious: Yes (Hospitalization, Other)
  Sender: FDA-Public Use
  Company Number: FI-BRISTOL-MYERS SQUIBB COMPANY-15072465

PATIENT
  Age: 70 Year
  Sex: Female

DRUGS (6)
  1. SAXAGLIPTIN [Suspect]
     Indication: TYPE 2 DIABETES MELLITUS
     Dosage: INTERRUPTED ON 20APR10?RESUMED ON21APR10?26APR10-27APR10?INT:17JAN11
     Route: 048
     Dates: start: 20100119
  2. METFORMIN HCL [Suspect]
     Indication: TYPE 2 DIABETES MELLITUS
     Route: 048
  3. PLACEBO [Suspect]
     Indication: TYPE 2 DIABETES MELLITUS
     Dosage: INT:17JAN11
     Route: 048
     Dates: start: 20100119
  4. MAREVAN [Concomitant]
     Route: 048
  5. ENALAPRIL [Concomitant]
     Indication: HYPERTENSION
     Route: 048
  6. AMLODIPINE [Concomitant]
     Indication: HYPERTENSION
     Route: 048
     Dates: start: 20100120

REACTIONS (2)
  - Calculus bladder [Recovered/Resolved with Sequelae]
  - Pyelonephritis [Recovered/Resolved]
